FAERS Safety Report 18497775 (Version 1)
Quarter: 2020Q4

REPORT INFORMATION
  Report Type: Spontaneous
  Country: LV (occurrence: LV)
  Receive Date: 20201112
  Receipt Date: 20201112
  Transmission Date: 20210114
  Serious: Yes (Other)
  Sender: FDA-Public Use
  Company Number: NVSC2020LV297674

PATIENT
  Age: 53 Year
  Sex: Male

DRUGS (20)
  1. TERIZIDONE [Concomitant]
     Active Substance: TERIZIDONE
     Dosage: 750 MG, QD
     Route: 048
     Dates: start: 20191022, end: 20191205
  2. BEDAQUILINE [Concomitant]
     Active Substance: BEDAQUILINE
     Indication: PULMONARY TUBERCULOSIS
     Dosage: 400 MG, QD
     Route: 048
     Dates: start: 20191224, end: 20200116
  3. METRONIDAZOLUM [Concomitant]
     Indication: PRODUCT USED FOR UNKNOWN INDICATION
     Dosage: 1500 MG, QD (500 MG, TID)
     Route: 048
     Dates: start: 20191106, end: 20191215
  4. TAMSULOSINUM [Concomitant]
     Indication: PRODUCT USED FOR UNKNOWN INDICATION
     Dosage: 1 DF, QD
     Route: 048
     Dates: start: 20191219
  5. LEVOFLOXACIN. [Concomitant]
     Active Substance: LEVOFLOXACIN
     Dosage: 3 G, QW (1 G, TIW)
     Route: 048
     Dates: start: 20191207, end: 20191218
  6. RINGERS SOLUTION [Concomitant]
     Active Substance: CALCIUM CHLORIDE\POTASSIUM CHLORIDE\SODIUM CHLORIDE
     Indication: PRODUCT USED FOR UNKNOWN INDICATION
     Dosage: 500 ML, QD
     Route: 042
     Dates: start: 20191206, end: 20191215
  7. LINEZOLID. [Concomitant]
     Active Substance: LINEZOLID
     Indication: PULMONARY TUBERCULOSIS
     Dosage: 600 MG, QD
     Route: 048
     Dates: start: 20191022, end: 20191205
  8. TERIZIDONE [Concomitant]
     Active Substance: TERIZIDONE
     Indication: PULMONARY TUBERCULOSIS
     Dosage: 2250 MG, QW (750 MG, TIW)
     Route: 048
     Dates: start: 20191207, end: 20191218
  9. BEDAQUILINE [Concomitant]
     Active Substance: BEDAQUILINE
     Dosage: 600 MG, QW (200 MG, TIW)
     Route: 048
     Dates: start: 20200108, end: 20200904
  10. DICLOFENAC [Suspect]
     Active Substance: DICLOFENAC
     Dosage: UNK
     Route: 065
     Dates: start: 20191219
  11. DELAMANID [Suspect]
     Active Substance: DELAMANID
     Indication: PULMONARY TUBERCULOSIS
     Dosage: 200 MG, QD (100 MG, BID)
     Route: 048
     Dates: start: 20191023
  12. DOMPERIDONUM [Concomitant]
     Indication: PROPHYLAXIS
     Dosage: 30 MG, QD (10 MG, TID)
     Route: 048
     Dates: start: 20191022, end: 20200210
  13. DICLOFENAC [Suspect]
     Active Substance: DICLOFENAC
     Indication: PYREXIA
     Dosage: UNK
     Route: 065
     Dates: end: 20191206
  14. OMEPRAZOL [Concomitant]
     Active Substance: OMEPRAZOLE
     Indication: PROPHYLAXIS
     Dosage: 20 MG, QD
     Route: 048
     Dates: start: 20191023
  15. ENTEROL [Concomitant]
     Indication: PRODUCT USED FOR UNKNOWN INDICATION
     Dosage: 2 DF, QD (1 DF, BID)
     Route: 048
     Dates: start: 20191103, end: 20200127
  16. LEVOFLOXACIN. [Concomitant]
     Active Substance: LEVOFLOXACIN
     Indication: PULMONARY TUBERCULOSIS
     Dosage: 1 G, QD
     Route: 048
     Dates: start: 20191022, end: 20191205
  17. LEVOFLOXACIN. [Concomitant]
     Active Substance: LEVOFLOXACIN
     Dosage: 1 G, QD
     Route: 048
     Dates: start: 20200119, end: 20200904
  18. TERIZIDONE [Concomitant]
     Active Substance: TERIZIDONE
     Dosage: 750 MG, QD
     Route: 048
     Dates: start: 20191219, end: 20200116
  19. NEURORUBIN [Concomitant]
     Indication: PROPHYLAXIS
     Dosage: 1 DF, QD
     Route: 048
     Dates: start: 20191022, end: 20200210
  20. CLOFAZIMINE [Concomitant]
     Active Substance: CLOFAZIMINE
     Indication: PULMONARY TUBERCULOSIS
     Dosage: 100 MG, QD
     Route: 048
     Dates: start: 20191022, end: 20200904

REACTIONS (3)
  - Electrocardiogram QT prolonged [Recovered/Resolved]
  - Paradoxical drug reaction [Recovered/Resolved]
  - Acute kidney injury [Recovered/Resolved]

NARRATIVE: CASE EVENT DATE: 20191103
